FAERS Safety Report 11890067 (Version 1)
Quarter: 2016Q1

REPORT INFORMATION
  Report Type: Spontaneous
  Country: US (occurrence: US)
  Receive Date: 20160105
  Receipt Date: 20160105
  Transmission Date: 20160526
  Serious: Yes (Death, Other)
  Sender: FDA-Public Use
  Company Number: US-MEDTRONIC-1046159

PATIENT
  Age: 51 Year
  Sex: Female

DRUGS (1)
  1. BACLOFEN UNKNOWN [Suspect]
     Active Substance: BACLOFEN
     Route: 037

REACTIONS (2)
  - Condition aggravated [Fatal]
  - Death [Fatal]

NARRATIVE: CASE EVENT DATE: 20151220
